FAERS Safety Report 4634732-7 (Version None)
Quarter: 2005Q2

REPORT INFORMATION
  Report Type: 
  Country: None (occurrence: None)
  Receive Date: 20050413
  Receipt Date: 20050413
  Transmission Date: 20051028
  Serious: Yes (Other)
  Sender: FDA-Public Use
  Company Number: None

PATIENT
  Age: 53 Year
  Sex: Male

DRUGS (2)
  1. AVELOX [Suspect]
     Indication: SINUSITIS
  2. LEVAQUIN [Suspect]
     Dosage: 500 MG/ DAILY/ 7 DAYS
     Dates: start: 20050318, end: 20050324

REACTIONS (7)
  - ARTHRALGIA [None]
  - DRUG INEFFECTIVE [None]
  - GROIN PAIN [None]
  - PAIN IN EXTREMITY [None]
  - SKIN LESION [None]
  - TENDON DISORDER [None]
  - UPPER RESPIRATORY TRACT CONGESTION [None]
